FAERS Safety Report 19240073 (Version 1)
Quarter: 2021Q2

REPORT INFORMATION
  Report Type: Spontaneous
  Country: FR (occurrence: FR)
  Receive Date: 20210510
  Receipt Date: 20210510
  Transmission Date: 20210717
  Serious: Yes (Other)
  Sender: FDA-Public Use
  Company Number: FR-PFIZER INC-2021484565

PATIENT
  Age: 38 Year
  Sex: Female

DRUGS (3)
  1. ZOPICLON [Suspect]
     Active Substance: ZOPICLONE
     Dosage: AT LEAST 1 TABLET / DAY
     Route: 048
  2. ZOLPIDEM [Suspect]
     Active Substance: ZOLPIDEM TARTRATE
     Dosage: AT LEAST 1 TABLET / DAY
     Route: 048
  3. ALPRAZOLAM. [Suspect]
     Active Substance: ALPRAZOLAM
     Dosage: AT LEAST 3 TABLETS / DAY
     Route: 048

REACTIONS (1)
  - Drug use disorder [Not Recovered/Not Resolved]
